FAERS Safety Report 21064418 (Version 2)
Quarter: 2022Q3

REPORT INFORMATION
  Report Type: Spontaneous
  Country: US (occurrence: US)
  Receive Date: 20220711
  Receipt Date: 20220802
  Transmission Date: 20221027
  Serious: Yes (Other)
  Sender: FDA-Public Use
  Company Number: US-MACLEODS PHARMACEUTICALS US LTD-MAC2022036381

PATIENT

DRUGS (27)
  1. DULOXETINE [Interacting]
     Active Substance: DULOXETINE
     Indication: Neuropathy peripheral
     Dosage: 1 DOSAGE FORM, QD (60 MG 1 CAPSULE IN THE MORNING)
     Route: 065
  2. DULOXETINE [Interacting]
     Active Substance: DULOXETINE
     Indication: Neuralgia
  3. TRAMADOL [Interacting]
     Active Substance: TRAMADOL
     Indication: Osteoarthritis
     Dosage: 1 DOSAGE FORM, TID ((MORNING, EVENING AND BEDTIME)
     Route: 065
  4. AMITRIPTYLINE [Interacting]
     Active Substance: AMITRIPTYLINE
     Indication: Neuropathy peripheral
     Dosage: 75 MILLIGRAM, QD AT BEDTIME
     Route: 065
  5. AMITRIPTYLINE [Interacting]
     Active Substance: AMITRIPTYLINE
     Indication: Neuralgia
  6. CARVEDILOL [Interacting]
     Active Substance: CARVEDILOL
     Indication: Hypertension
     Dosage: 1 DOSAGE FORM, BID (6.25 MG 1 TABLET IN THE MORNING AND BEDTIME)
     Route: 065
  7. OMEPRAZOLE [Interacting]
     Active Substance: OMEPRAZOLE
     Indication: Gastrooesophageal reflux disease
     Dosage: 40 MILLIGRAM, QD, 1 TABLET IN THE MORNING
     Route: 065
  8. HYDROXYZINE [Interacting]
     Active Substance: HYDROXYZINE HYDROCHLORIDE
     Indication: Anxiety
     Dosage: 1 DOSAGE FORM, QD (AT BEDTIME)
     Route: 065
  9. ALPRAZOLAM [Concomitant]
     Active Substance: ALPRAZOLAM
     Indication: Anxiety
     Dosage: 1 DOSAGE FORM, PRN, AS NEEDED
     Route: 065
  10. DILTIAZEM [Concomitant]
     Active Substance: DILTIAZEM
     Indication: Atrial fibrillation
     Dosage: 1 DOSAGE FORM, QD (IN THE MORNING)
     Route: 065
  11. ASPIRIN [Concomitant]
     Active Substance: ASPIRIN
     Indication: Pulmonary vascular disorder
     Dosage: 1 DOSAGE FORM, QD (81 MG 1 TABLET IN THE MORNING)
     Route: 065
  12. APIXABAN [Concomitant]
     Active Substance: APIXABAN
     Indication: Pulmonary vascular disorder
     Dosage: 1 DOSAGE FORM, BID (5 MG 1 TABLET IN THE MORNING AND EVENING)
     Route: 065
  13. ALBUTEROL [Concomitant]
     Active Substance: ALBUTEROL
     Indication: Chronic obstructive pulmonary disease
     Dosage: 2 DOSAGE FORM, PRN (90 MCG 2 PUFFS EVERY 6 H AS NEEDED)
  14. ALBUTEROL\IPRATROPIUM [Concomitant]
     Active Substance: ALBUTEROL\IPRATROPIUM
     Indication: Chronic obstructive pulmonary disease
     Dosage: 1 DOSAGE FORM, QID ( 0.5MG/3MG 1 VIAL VIA NEBULIZER FOUR TIMES DAILY)
  15. TIOTROPIUM [Concomitant]
     Active Substance: TIOTROPIUM
     Indication: Chronic obstructive pulmonary disease
     Dosage: 1 DOSAGE FORM, QD (1.25 MCG 2 PUFFS ONCE DAILY)
  16. PHENYTOIN [Concomitant]
     Active Substance: PHENYTOIN
     Indication: Epilepsy
     Dosage: 1 DOSAGE FORM, BID (100 MG 1 TABLET IN THE MORNING AND BEDTIME)
     Route: 065
  17. ATORVASTATIN [Concomitant]
     Active Substance: ATORVASTATIN
     Indication: Hyperlipidaemia
     Dosage: 1 DOSAGE FORM, QD (1 TABLET IN THE MORNING)
     Route: 065
  18. POTASSIUM CHLORIDE [Concomitant]
     Active Substance: POTASSIUM CHLORIDE
     Indication: Hypokalaemia
     Dosage: 1 DOSAGE FORM, QD (20 MEQ 1 TABLET IN THE MORNING)
     Route: 065
  19. LEVOTHYROXINE [Concomitant]
     Active Substance: LEVOTHYROXINE
     Indication: Hypothyroidism
     Dosage: 1 DOSAGE FORM, QD (1 TABLET IN THE MORNING)
     Route: 065
  20. FUROSEMIDE [Concomitant]
     Active Substance: FUROSEMIDE
     Indication: Ischaemic cardiomyopathy
     Dosage: 1 DOSAGE FORM, QD (80 MG 1 TABLET ONCE DAILY)
     Route: 065
  21. NITROGLYCERIN [Concomitant]
     Active Substance: NITROGLYCERIN
     Indication: Ischaemic cardiomyopathy
     Dosage: 1 DOSAGE FORM, PRN (0.4 MG 1 TABLET EVERY 5 MIN AS NEEDED)
     Route: 065
  22. SOTALOL [Concomitant]
     Active Substance: SOTALOL
     Indication: Ischaemic cardiomyopathy
     Dosage: 120 MILLIGRAM, BID, ONE TABLET IN MORNING AND EVENING
  23. VITAMINS [Concomitant]
     Active Substance: VITAMINS
     Indication: Malnutrition
     Dosage: 1 DOSAGE FORM, QD, IN THE MORNING
     Route: 065
  24. GABAPENTIN [Concomitant]
     Active Substance: GABAPENTIN
     Indication: Neuropathy peripheral
     Dosage: 1 DOSAGE FORM, TID (100 MG 1 CAPSULE IN THE MORNING, EVENING AND BEDTIME)
     Route: 065
  25. PREGABALIN [Concomitant]
     Active Substance: PREGABALIN
     Indication: Neuropathy peripheral
     Dosage: 1 DOSAGE FORM, BID (150 MG 1 CAPSULE IN THE MORNING AND EVENING)
     Route: 065
  26. PREGABALIN [Concomitant]
     Active Substance: PREGABALIN
     Indication: Neuralgia
  27. ALENDRONATE [Concomitant]
     Active Substance: ALENDRONATE SODIUM
     Indication: Osteoporosis
     Dosage: 1 DOSAGE FORM, Q.W. (70 MG 1 TABLET ONCE A WEEK)
     Route: 065

REACTIONS (7)
  - Drug level decreased [Unknown]
  - Drug level increased [Unknown]
  - Withdrawal syndrome [Unknown]
  - Tremor [Recovered/Resolved]
  - Inadequate analgesia [Recovering/Resolving]
  - Drug-genetic interaction [Recovered/Resolved]
  - Drug interaction [Recovered/Resolved]
